FAERS Safety Report 5528053-8 (Version None)
Quarter: 2007Q4

REPORT INFORMATION
  Report Type: 
  Country: None (occurrence: None)
  Receive Date: 20071128
  Receipt Date: 20071119
  Transmission Date: 20080405
  Serious: Yes (Hospitalization)
  Sender: FDA-Public Use
  Company Number: US-JNJFOC-20071107892

PATIENT
  Sex: Male

DRUGS (3)
  1. RISPERDAL [Suspect]
     Dosage: AT NIGHT
     Route: 048
  2. RISPERDAL [Suspect]
     Indication: AUTISM
     Dosage: IN THE MORNING
     Route: 048
  3. KLONOPIN [Concomitant]
     Indication: AUTISM
     Route: 048

REACTIONS (4)
  - FATIGUE [None]
  - PAIN IN EXTREMITY [None]
  - THROMBOSIS [None]
  - WEIGHT INCREASED [None]
